FAERS Safety Report 8185949-9 (Version None)
Quarter: 2012Q1

REPORT INFORMATION
  Report Type: 
  Country: None (occurrence: None)
  Receive Date: 20120305
  Receipt Date: 20120227
  Transmission Date: 20120608
  Serious: Yes (Other)
  Sender: FDA-Public Use
  Company Number: US-ASTRAZENECA-2010SE41714

PATIENT
  Age: 73 Year
  Sex: Female

DRUGS (3)
  1. NEXIUM [Suspect]
     Route: 048
  2. ANASTROZOLE [Suspect]
     Route: 048
     Dates: start: 20100827
  3. ZOMETA [Concomitant]
     Route: 042

REACTIONS (9)
  - METASTASES TO BONE [None]
  - ADVERSE EVENT [None]
  - GASTRIC DISORDER [None]
  - DRUG DOSE OMISSION [None]
  - GASTROOESOPHAGEAL REFLUX DISEASE [None]
  - FATIGUE [None]
  - DRUG INEFFECTIVE [None]
  - DRUG INTOLERANCE [None]
  - INSOMNIA [None]
